FAERS Safety Report 7679629-3 (Version None)
Quarter: 2011Q3

REPORT INFORMATION
  Report Type: 
  Country: None (occurrence: None)
  Receive Date: 20110809
  Receipt Date: 20110729
  Transmission Date: 20111222
  Serious: Yes (Hospitalization)
  Sender: FDA-Public Use
  Company Number: DSM-2011-00746

PATIENT
  Age: 76 Year
  Sex: Female

DRUGS (4)
  1. ATENOLOL [Concomitant]
  2. LASIX [Concomitant]
  3. LERCANIDIPINE [Concomitant]
  4. OLMESARTAN MEDOXOMIL [Suspect]
     Indication: HYPERTENSION
     Dosage: 10 MG (10 MG, 1 IN 1 D), ORAL
     Route: 048
     Dates: start: 20110415, end: 20110518

REACTIONS (2)
  - ALVEOLITIS [None]
  - TRACHEAL DISORDER [None]
